FAERS Safety Report 5635772-1 (Version None)
Quarter: 2008Q1

REPORT INFORMATION
  Report Type: 
  Country: None (occurrence: None)
  Receive Date: 20080220
  Receipt Date: 20071128
  Transmission Date: 20080703
  Serious: Yes (Hospitalization)
  Sender: FDA-Public Use
  Company Number: 530#6#2007-00058

PATIENT
  Age: 82 Year
  Sex: Female

DRUGS (20)
  1. NEUPRO [Suspect]
     Indication: PARKINSON'S DISEASE
     Dosage: SEE IMAGE; TRANSDERMAL
     Route: 062
     Dates: start: 20060817, end: 20060821
  2. NEUPRO [Suspect]
     Indication: PARKINSON'S DISEASE
     Dosage: SEE IMAGE; TRANSDERMAL
     Route: 062
     Dates: start: 20060901, end: 20070515
  3. NEUPRO [Suspect]
     Indication: PARKINSON'S DISEASE
     Dosage: SEE IMAGE; TRANSDERMAL
     Route: 062
     Dates: start: 20070516
  4. CARBIDOPA AND LEVODOPA [Suspect]
     Dosage: 25/100MG, TWICE DAILY, 25/100MG ORAL, THREE TIMES DAILY ORAL, 25/100MG FOUR TIMES DAILY; ORAL
     Route: 048
     Dates: start: 20061217, end: 20071115
  5. AMANTADINE 100MG, TABLETS (AMANTADINE) [Suspect]
  6. CARBIDOPA + LEVODOPA [Suspect]
     Dosage: SEE IMAGE; ORAL
     Route: 048
     Dates: start: 20061116, end: 20061119
  7. CARBIDOPA + LEVODOPA [Suspect]
     Dosage: SEE IMAGE; ORAL
     Route: 048
     Dates: start: 20061120, end: 20061122
  8. CARBIDOPA + LEVODOPA [Suspect]
     Dosage: SEE IMAGE; ORAL
     Route: 048
     Dates: start: 20061123, end: 20061125
  9. CARBIDOPA + LEVODOPA [Suspect]
     Dosage: SEE IMAGE; ORAL
     Route: 048
     Dates: start: 20061204, end: 20061206
  10. CARBIDOPA + LEVODOPA [Suspect]
     Dosage: SEE IMAGE; ORAL
     Route: 048
     Dates: start: 20061207, end: 20061209
  11. CARBIDOPA + LEVODOPA [Suspect]
     Dosage: SEE IMAGE; ORAL
     Route: 048
     Dates: start: 20061210, end: 20061212
  12. CARBIDOPA + LEVODOPA [Suspect]
     Dosage: SEE IMAGE; ORAL
     Route: 048
     Dates: start: 20061213, end: 20061216
  13. ENALAPRIL 5MG, TABLETS (ENALAPRIL) [Concomitant]
  14. ALENDRONIC ACID 10 MG, CAPSULES (ALENDRONIC ACID) [Concomitant]
  15. OPIPRAMOL 50 MG, TABLETS (OPIPRAMOL) [Concomitant]
  16. OMEPRAZOLE 20MG, CAPSULES (OMEPRAZOLE) [Concomitant]
  17. TRIAMTERENE 50MG AND HYDROCHLOROTHIAZIDE 25MG TABLETS (TRIAMTERENE, HY [Concomitant]
  18. LORAZEPAM 25MG, TABLETS (LORAZEPAM) [Concomitant]
  19. IBUPROFEN 800MG, TABLETS (IBUPROFEN) [Concomitant]
  20. CALCIUM 500MG, TABLETS (CALCIUM) [Concomitant]

REACTIONS (2)
  - DEHYDRATION [None]
  - FAECALOMA [None]
